FAERS Safety Report 15322229 (Version 1)
Quarter: 2018Q3

REPORT INFORMATION
  Report Type: Report from Study
  Country: JP (occurrence: JP)
  Receive Date: 20180827
  Receipt Date: 20180827
  Transmission Date: 20181010
  Serious: Yes (Hospitalization, Other)
  Sender: FDA-Public Use
  Company Number: JP-SA-2018SA142028

PATIENT
  Age: 61 Year
  Sex: Male
  Weight: 62 kg

DRUGS (1)
  1. PLERIXAFOR [Suspect]
     Active Substance: PLERIXAFOR
     Indication: STEM CELL TRANSPLANT
     Dosage: 0.24 MG/KG, QD
     Route: 058
     Dates: start: 20170912

REACTIONS (1)
  - Atypical mycobacterial infection [Unknown]

NARRATIVE: CASE EVENT DATE: 20171017
